FAERS Safety Report 9402969 (Version 1)
Quarter: 2013Q3

REPORT INFORMATION
  Report Type: Spontaneous
  Country: IT (occurrence: IT)
  Receive Date: 20130716
  Receipt Date: 20130716
  Transmission Date: 20140515
  Serious: Yes (Life-Threatening)
  Sender: FDA-Public Use
  Company Number: IT-TEVA-417421ISR

PATIENT
  Age: 23 Year
  Sex: Female

DRUGS (2)
  1. OLANZAPINA TEVA [Suspect]
     Indication: PSYCHOTIC DISORDER
     Dosage: 10 MILLIGRAM DAILY;
     Route: 048
     Dates: start: 20120620, end: 20120720
  2. TOPIRAMATO [Concomitant]
     Dates: start: 20120620, end: 20120920

REACTIONS (2)
  - Extrasystoles [Recovered/Resolved]
  - Hyperkinesia [Recovered/Resolved]
